FAERS Safety Report 26146866 (Version 1)
Quarter: 2025Q4

REPORT INFORMATION
  Report Type: Spontaneous
  Country: TH (occurrence: TH)
  Receive Date: 20251211
  Receipt Date: 20251211
  Transmission Date: 20260117
  Serious: Yes (Life-Threatening, Hospitalization)
  Sender: GALPHARM INTERNATIONAL
  Company Number: TH-MLMSERVICE-20251124-PI725489-00295-1

PATIENT
  Age: 17 Year
  Sex: Female

DRUGS (4)
  1. ACETAMINOPHEN [Suspect]
     Active Substance: ACETAMINOPHEN
     Indication: Product used for unknown indication
     Dosage: SUBSTANTIAL QUANTITY OF PARACETAMOL
     Route: 048
  2. SERTRALINE [Suspect]
     Active Substance: SERTRALINE HYDROCHLORIDE
     Dosage: SUBSTANTIAL QUANTITY OF SERTRALINE (50?MG)
     Route: 048
  3. QUETIAPINE [Suspect]
     Active Substance: QUETIAPINE
     Dosage: SUBSTANTIAL QUANTITY OF QUETIAPINE (200?MG)
     Route: 048
  4. TRAZODONE [Suspect]
     Active Substance: TRAZODONE HYDROCHLORIDE
     Dosage: SUBSTANTIAL QUANTITY OF TRAZODONE (50?MG)
     Route: 048

REACTIONS (4)
  - Serotonin syndrome [Recovered/Resolved]
  - Coma [Unknown]
  - Pneumonia aspiration [Unknown]
  - Intentional overdose [Unknown]
